FAERS Safety Report 5127758-0 (Version None)
Quarter: 2006Q4

REPORT INFORMATION
  Report Type: 
  Country: None (occurrence: None)
  Receive Date: 20061016
  Receipt Date: 20061013
  Transmission Date: 20070319
  Serious: Yes (Other)
  Sender: FDA-Public Use
  Company Number: US-GLAXOSMITHKLINE-A0623465A

PATIENT
  Sex: Female

DRUGS (2)
  1. NICORETTE [Suspect]
     Route: 002
  2. NICORETTE [Suspect]

REACTIONS (6)
  - DEPENDENCE [None]
  - DRUG INEFFECTIVE [None]
  - EXOPHTHALMOS [None]
  - INSOMNIA [None]
  - INTENTIONAL DRUG MISUSE [None]
  - PSYCHOMOTOR HYPERACTIVITY [None]
